FAERS Safety Report 5779048-0 (Version None)
Quarter: 2008Q2

REPORT INFORMATION
  Report Type: 
  Country: None (occurrence: None)
  Receive Date: 20080613
  Receipt Date: 20070919
  Transmission Date: 20081010
  Serious: Yes (Other)
  Sender: FDA-Public Use
  Company Number: PHEH2007US12513

PATIENT
  Age: 84 Year
  Sex: Female

DRUGS (9)
  1. EXELON [Suspect]
     Indication: DEMENTIA ALZHEIMER'S TYPE
     Dosage: 3 MG, QD, ORAL
     Route: 048
  2. ZYPREXA [Concomitant]
  3. ATENOLOL [Concomitant]
  4. COZAAR [Concomitant]
  5. NORVASC [Concomitant]
  6. LESCOL [Concomitant]
  7. CITALOPRAM HYDROBROMIDE [Concomitant]
  8. PREVACID [Concomitant]
  9. HYDROCODONE (HYDROCODONE) [Concomitant]

REACTIONS (2)
  - HYPERKALAEMIA [None]
  - RENAL IMPAIRMENT [None]
